FAERS Safety Report 21523534 (Version 1)
Quarter: 2022Q4

REPORT INFORMATION
  Report Type: Spontaneous
  Country: US (occurrence: US)
  Receive Date: 20221029
  Receipt Date: 20221029
  Transmission Date: 20230113
  Serious: Yes (Hospitalization, Other)
  Sender: FDA-Public Use
  Company Number: US-AUROBINDO-AUR-APL-2022-045541

PATIENT
  Age: 25 Year
  Sex: Male

DRUGS (13)
  1. BACLOFEN [Suspect]
     Active Substance: BACLOFEN
     Indication: Product used for unknown indication
     Dosage: 250 MILLIGRAM (10 TABLETS OF BACLOFEN 25MG EACH)
     Route: 048
  2. LEVETIRACETAM [Suspect]
     Active Substance: LEVETIRACETAM
     Indication: Metabolic alkalosis
     Dosage: 1 GRAM
     Route: 042
  3. LEVETIRACETAM [Suspect]
     Active Substance: LEVETIRACETAM
     Indication: Altered state of consciousness
  4. ONDANSETRON [Suspect]
     Active Substance: ONDANSETRON
     Indication: Altered state of consciousness
     Dosage: 4 MILLIGRAM
     Route: 042
  5. ONDANSETRON [Suspect]
     Active Substance: ONDANSETRON
     Indication: Metabolic alkalosis
  6. RABEPRAZOLE [Suspect]
     Active Substance: RABEPRAZOLE
     Indication: Metabolic alkalosis
     Dosage: 20 MILLIGRAM
     Route: 042
  7. RABEPRAZOLE [Suspect]
     Active Substance: RABEPRAZOLE
     Indication: Altered state of consciousness
  8. MIDAZOLAM [Suspect]
     Active Substance: MIDAZOLAM
     Indication: Metabolic alkalosis
     Dosage: 1 MILLIGRAM
     Route: 042
  9. MIDAZOLAM [Suspect]
     Active Substance: MIDAZOLAM
     Indication: Altered state of consciousness
  10. SODIUM CHLORIDE [Suspect]
     Active Substance: SODIUM CHLORIDE
     Indication: Metabolic alkalosis
     Dosage: UNK
     Route: 065
  11. SODIUM CHLORIDE [Suspect]
     Active Substance: SODIUM CHLORIDE
     Indication: Altered state of consciousness
  12. SODIUM BICARBONATE [Suspect]
     Active Substance: SODIUM BICARBONATE
     Indication: Metabolic alkalosis
     Dosage: UNK
     Route: 065
  13. SODIUM BICARBONATE [Suspect]
     Active Substance: SODIUM BICARBONATE
     Indication: Altered state of consciousness

REACTIONS (4)
  - Metabolic alkalosis [Recovered/Resolved]
  - Altered state of consciousness [Recovered/Resolved]
  - Overdose [Recovered/Resolved]
  - Drug ineffective [Unknown]
